FAERS Safety Report 10367472 (Version 2)
Quarter: 2014Q3

REPORT INFORMATION
  Report Type: Report from Study
  Country: AR (occurrence: AR)
  Receive Date: 20140807
  Receipt Date: 20140823
  Transmission Date: 20150326
  Serious: Yes (Hospitalization)
  Sender: FDA-Public Use
  Company Number: PHHY2014AR095866

PATIENT
  Age: 66 Year
  Sex: Male
  Weight: 62 kg

DRUGS (2)
  1. TACROLIMUS. [Concomitant]
     Active Substance: TACROLIMUS
     Indication: TRANSPLANT REJECTION
     Dosage: 7 MG, PER 12H
     Dates: start: 20130909
  2. MYFORTIC [Suspect]
     Active Substance: MYCOPHENOLATE SODIUM
     Indication: TRANSPLANT REJECTION
     Dosage: 720 MG, PER 12H
     Route: 048
     Dates: start: 20130906, end: 20140731

REACTIONS (9)
  - Anaemia [Recovering/Resolving]
  - Haemoglobin decreased [Recovering/Resolving]
  - Diarrhoea [Recovering/Resolving]
  - Vomiting [Recovering/Resolving]
  - Hyponatraemia [Recovering/Resolving]
  - Oliguria [Recovering/Resolving]
  - Cytomegalovirus infection [Not Recovered/Not Resolved]
  - Hypotension [Recovering/Resolving]
  - Blood creatinine increased [Unknown]

NARRATIVE: CASE EVENT DATE: 20140731
